FAERS Safety Report 24331861 (Version 1)
Quarter: 2024Q3

REPORT INFORMATION
  Report Type: Spontaneous
  Country: US (occurrence: US)
  Receive Date: 20240918
  Receipt Date: 20240918
  Transmission Date: 20241016
  Serious: Yes (Death, Hospitalization)
  Sender: STRIDES
  Company Number: US-STRIDES ARCOLAB LIMITED-2024SP011824

PATIENT

DRUGS (27)
  1. DOXORUBICIN [Suspect]
     Active Substance: DOXORUBICIN
     Indication: Cutaneous T-cell lymphoma
     Dosage: UNK, CYCLICAL (PART OF CHOP REGIMEN; RECEIVED 6 CYCLES)
     Route: 065
  2. DOXORUBICIN [Suspect]
     Active Substance: DOXORUBICIN
     Indication: Lymphoma transformation
  3. PREDNISOLONE [Suspect]
     Active Substance: PREDNISOLONE
     Indication: Cutaneous T-cell lymphoma
     Dosage: UNK, CYCLICAL (PART OF CHOP REGIMEN; RECEIVED 6 CYCLES)
     Route: 065
  4. PREDNISOLONE [Suspect]
     Active Substance: PREDNISOLONE
     Indication: Lymphoma transformation
  5. CYCLOPHOSPHAMIDE [Suspect]
     Active Substance: CYCLOPHOSPHAMIDE
     Indication: Cutaneous T-cell lymphoma
     Dosage: UNK, CYCLICAL (PART OF CHOP REGIMEN; RECEIVED 6 CYCLES)
     Route: 065
  6. CYCLOPHOSPHAMIDE [Suspect]
     Active Substance: CYCLOPHOSPHAMIDE
     Indication: Lymphoma transformation
  7. VINCRISTINE [Suspect]
     Active Substance: VINCRISTINE
     Indication: Cutaneous T-cell lymphoma
     Dosage: UNK, CYCLICAL (PART OF CHOP REGIMEN; RECEIVED 6 CYCLES)
     Route: 065
  8. VINCRISTINE [Suspect]
     Active Substance: VINCRISTINE
     Indication: Lymphoma transformation
  9. ROMIDEPSIN [Suspect]
     Active Substance: ROMIDEPSIN
     Indication: Cutaneous T-cell lymphoma
     Dosage: UNK, CYCLICAL (RECEIVED 3 CYCLES)
     Route: 065
  10. ROMIDEPSIN [Suspect]
     Active Substance: ROMIDEPSIN
     Indication: Lymphoma transformation
  11. GEMCITABINE [Suspect]
     Active Substance: GEMCITABINE
     Indication: Cutaneous T-cell lymphoma
     Dosage: UNK, CYCLICAL (RECEIVED 3 CYCLES)
     Route: 065
  12. GEMCITABINE [Suspect]
     Active Substance: GEMCITABINE
     Indication: Lymphoma transformation
  13. BRENTUXIMAB VEDOTIN [Suspect]
     Active Substance: BRENTUXIMAB VEDOTIN
     Indication: Cutaneous T-cell lymphoma
     Dosage: UNK
     Route: 065
  14. BRENTUXIMAB VEDOTIN [Suspect]
     Active Substance: BRENTUXIMAB VEDOTIN
     Indication: Lymphoma transformation
     Dosage: UNK, CYCLICAL (4 CYCLES)
     Route: 065
  15. BRENTUXIMAB VEDOTIN [Suspect]
     Active Substance: BRENTUXIMAB VEDOTIN
     Dosage: UNK, CYCLICAL (MAINTENANCE FOR 3?CYCLES)
     Route: 065
  16. NIVOLUMAB [Suspect]
     Active Substance: NIVOLUMAB
     Indication: Cutaneous T-cell lymphoma
     Dosage: UNK
     Route: 065
  17. NIVOLUMAB [Suspect]
     Active Substance: NIVOLUMAB
     Indication: Lymphoma transformation
  18. DUVELISIB [Suspect]
     Active Substance: DUVELISIB
     Indication: Cutaneous T-cell lymphoma
     Dosage: UNK
     Route: 065
  19. DUVELISIB [Suspect]
     Active Substance: DUVELISIB
     Indication: Lymphoma transformation
  20. BENDAMUSTINE [Suspect]
     Active Substance: BENDAMUSTINE
     Indication: Cutaneous T-cell lymphoma
     Dosage: UNK
     Route: 065
  21. BENDAMUSTINE [Suspect]
     Active Substance: BENDAMUSTINE
     Indication: Lymphoma transformation
     Dosage: UNK, CYCLICAL (4 CYCLES)
     Route: 065
  22. BENDAMUSTINE [Suspect]
     Active Substance: BENDAMUSTINE
     Dosage: UNK
     Route: 065
  23. METHYLPREDNISOLONE [Suspect]
     Active Substance: METHYLPREDNISOLONE
     Indication: Cutaneous T-cell lymphoma
     Dosage: UNK, HIGH DOSE
     Route: 065
  24. METHYLPREDNISOLONE [Suspect]
     Active Substance: METHYLPREDNISOLONE
     Indication: Lymphoma transformation
  25. PRALATREXATE [Suspect]
     Active Substance: PRALATREXATE
     Indication: Cutaneous T-cell lymphoma
     Dosage: UNK, CYCLICAL (RECEIVED 2 CYCLES)
     Route: 065
  26. PRALATREXATE [Suspect]
     Active Substance: PRALATREXATE
     Indication: Lymphoma transformation
  27. RASBURICASE [Suspect]
     Active Substance: RASBURICASE
     Indication: Prophylaxis
     Dosage: UNK
     Route: 065

REACTIONS (4)
  - Death [Fatal]
  - Therapy non-responder [Unknown]
  - Malignant neoplasm progression [Unknown]
  - Impetigo [Unknown]
